FAERS Safety Report 4594030-7 (Version None)
Quarter: 2005Q1

REPORT INFORMATION
  Report Type: 
  Country: None (occurrence: None)
  Receive Date: 20050301
  Receipt Date: 20050119
  Transmission Date: 20050727
  Serious: Yes (Hospitalization)
  Sender: FDA-Public Use
  Company Number: US-MERCK-0501USA03382

PATIENT
  Age: 78 Year
  Sex: Female
  Weight: 62 kg

DRUGS (9)
  1. VIOXX [Suspect]
     Indication: ARTHRALGIA
     Route: 048
     Dates: start: 20020918, end: 20030101
  2. VIOXX [Suspect]
     Route: 048
     Dates: start: 20040416, end: 20040621
  3. PLAVIX [Concomitant]
     Route: 065
  4. TENORMIN [Concomitant]
     Route: 065
  5. NORVASC [Concomitant]
     Route: 065
  6. ZANTAC [Concomitant]
     Route: 065
  7. LEXAPRO [Concomitant]
     Route: 065
  8. TEGRETOL [Concomitant]
     Route: 065
  9. LIPITOR [Concomitant]
     Route: 065

REACTIONS (28)
  - ACUTE PRERENAL FAILURE [None]
  - ANAEMIA [None]
  - AORTIC VALVE SCLEROSIS [None]
  - BRADYCARDIA [None]
  - CAROTID ARTERY STENOSIS [None]
  - CEREBRAL ISCHAEMIA [None]
  - CEREBROVASCULAR ACCIDENT [None]
  - CONTUSION [None]
  - DEPRESSION [None]
  - DIARRHOEA [None]
  - ECHOCARDIOGRAM ABNORMAL [None]
  - FALL [None]
  - HAEMORRHOIDAL HAEMORRHAGE [None]
  - HYPERLIPIDAEMIA [None]
  - HYPERTENSION [None]
  - HYPOTHYROIDISM [None]
  - MAJOR DEPRESSION [None]
  - MELAENA [None]
  - MITRAL VALVE INCOMPETENCE [None]
  - OEDEMA PERIPHERAL [None]
  - PEPTIC ULCER [None]
  - RECTAL HAEMORRHAGE [None]
  - REFRACTORY ANAEMIA [None]
  - SUBCLAVIAN STEAL SYNDROME [None]
  - TRANSIENT ISCHAEMIC ATTACK [None]
  - TREMOR [None]
  - TRICUSPID VALVE INCOMPETENCE [None]
  - UPPER GASTROINTESTINAL HAEMORRHAGE [None]
